FAERS Safety Report 8554324-7 (Version None)
Quarter: 2012Q3

REPORT INFORMATION
  Report Type: 
  Country: None (occurrence: None)
  Receive Date: 20120731
  Receipt Date: 20120711
  Transmission Date: 20120928
  Serious: No
  Sender: FDA-Public Use
  Company Number: US-009507513-2012SP031085

PATIENT

DRUGS (6)
  1. NYSTATIN [Suspect]
  2. FLUCONAZOLE [Suspect]
  3. METICORTEN [Concomitant]
     Dosage: UNK UNK, PRN
  4. PRILOSEC [Concomitant]
  5. DULERA [Suspect]
     Dosage: 2 PUFFS BY MOUTH DAILY IN THE MORNING AND EVENING
     Route: 055
  6. FUROSEMIDE [Concomitant]

REACTIONS (2)
  - HYPERSENSITIVITY [None]
  - CANDIDIASIS [None]
